FAERS Safety Report 9746696 (Version 4)
Quarter: 2014Q2

REPORT INFORMATION
  Report Type: Spontaneous
  Country: US (occurrence: US)
  Receive Date: 20131211
  Receipt Date: 20140430
  Transmission Date: 20141212
  Serious: Yes (Hospitalization, Other)
  Sender: FDA-Public Use
  Company Number: US200811000234

PATIENT
  Age: 67 Year
  Sex: Female
  Weight: 51.25 kg

DRUGS (20)
  1. BYETTA PEN DISPOSABLE [Suspect]
     Indication: TYPE 2 DIABETES MELLITUS
     Dosage: EXP: APR15
     Route: 058
     Dates: start: 200801
  2. BYETTA PEN DISPOSABLE [Suspect]
     Indication: TYPE 2 DIABETES MELLITUS
     Route: 058
     Dates: start: 2008
  3. EXENATIDE 5MCG PEN, DISPOSABLE DEVICE [Concomitant]
  4. EXENATIDE 5MCG PEN, DISPOSABLE DEVICE [Concomitant]
  5. EXENATIDE 5MCG PEN, DISPOSABLE DEVICE [Concomitant]
  6. EXENATIDE 5MCG PEN, DISPOSABLE DEVICE [Concomitant]
  7. EXENATIDE 5MCG PEN, DISPOSABLE DEVICE [Concomitant]
  8. METFORMIN [Concomitant]
     Indication: TYPE 2 DIABETES MELLITUS
     Route: 048
  9. GLIMEPIRIDE [Concomitant]
     Indication: TYPE 2 DIABETES MELLITUS
     Dosage: 2MG, BID
     Route: 048
  10. LIPITOR [Concomitant]
  11. LIPITOR [Concomitant]
  12. DIOVAN [Concomitant]
     Indication: PROPHYLAXIS
  13. DIOVAN [Concomitant]
     Indication: PROPHYLAXIS
  14. ASPIRIN [Concomitant]
     Indication: CORONARY ARTERIAL STENT INSERTION
  15. NITROQUICK [Concomitant]
  16. DIAZEPAM [Concomitant]
     Indication: ANXIETY
  17. ALENDRONATE [Concomitant]
     Indication: OSTEOPOROSIS
  18. CALCIUM + MAGNESIUM + ZINC [Concomitant]
  19. PRADAXA [Concomitant]
  20. ATORVASTATIN [Concomitant]

REACTIONS (6)
  - Leiomyoma [Unknown]
  - Renal cancer [Unknown]
  - Ear neoplasm [Unknown]
  - Benign pancreatic neoplasm [Unknown]
  - Weight decreased [Not Recovered/Not Resolved]
  - Product quality issue [Unknown]
